FAERS Safety Report 4585346-9 (Version None)
Quarter: 2005Q1

REPORT INFORMATION
  Report Type: 
  Country: None (occurrence: None)
  Receive Date: 20050214
  Receipt Date: 20050208
  Transmission Date: 20050727
  Serious: Yes (Other)
  Sender: FDA-Public Use
  Company Number: 805#1#2005-00006

PATIENT
  Age: 72 Year
  Sex: Female

DRUGS (1)
  1. ALPROSTADIL [Suspect]
     Indication: ATHEROSCLEROSIS OBLITERANS
     Dosage: 60 MCG INTRAVENOUS DRIP
     Route: 041
     Dates: start: 20041106, end: 20041111

REACTIONS (1)
  - ANGLE CLOSURE GLAUCOMA [None]
